FAERS Safety Report 5608880-9 (Version None)
Quarter: 2008Q1

REPORT INFORMATION
  Report Type: 
  Country: None (occurrence: None)
  Receive Date: 20080131
  Receipt Date: 20080122
  Transmission Date: 20080703
  Serious: Yes (Hospitalization)
  Sender: FDA-Public Use
  Company Number: QA-WYE-H02231008

PATIENT
  Age: 20 Year
  Sex: Male

DRUGS (3)
  1. PIPERACILLIN AND TAZOBACTAM [Suspect]
     Indication: PLEURAL EFFUSION
     Route: 042
  2. CLOXACILLIN SODIUM [Suspect]
     Indication: PNEUMONIA
     Route: 042
  3. CLOXACILLIN SODIUM [Suspect]
     Indication: EMPYEMA
     Route: 048

REACTIONS (5)
  - CONDITION AGGRAVATED [None]
  - DRUG HYPERSENSITIVITY [None]
  - EOSINOPHILIA [None]
  - PLEURAL EFFUSION [None]
  - PULMONARY EOSINOPHILIA [None]
